FAERS Safety Report 5496477-3 (Version None)
Quarter: 2007Q4

REPORT INFORMATION
  Report Type: 
  Country: None (occurrence: None)
  Receive Date: 20071023
  Receipt Date: 20071023
  Transmission Date: 20080405
  Serious: No
  Sender: FDA-Public Use
  Company Number: None

PATIENT
  Sex: Female
  Weight: 68.0396 kg

DRUGS (4)
  1. PROPOXYPHENE HYDROCHLORIDE [Suspect]
     Dosage: 100MG Q4HR PO
     Route: 048
  2. HYDROCODONE BITARTRATE [Suspect]
     Indication: MUSCULOSKELETAL PAIN
     Dosage: 500MG 1/2 TAB Q4HR PO
     Route: 048
     Dates: start: 20010123
  3. HYDROCODONE BITARTRATE [Suspect]
     Indication: NECK PAIN
     Dosage: 500MG 1/2 TAB Q4HR PO
     Route: 048
     Dates: start: 20010123
  4. TRAMADOL HYDROCHLORIDE AND ACETAMINOPHEN [Suspect]
     Dosage: 37.5/325 MG 1-2 Q6HR PO
     Route: 048

REACTIONS (2)
  - NAUSEA [None]
  - VOMITING [None]
